FAERS Safety Report 22182859 (Version 2)
Quarter: 2023Q2

REPORT INFORMATION
  Report Type: Spontaneous
  Country: US (occurrence: US)
  Receive Date: 20230406
  Receipt Date: 20230425
  Transmission Date: 20230722
  Serious: No
  Sender: FDA-Public Use
  Company Number: US-ALLERGAN-2216198US

PATIENT
  Sex: Female

DRUGS (1)
  1. QULIPTA [Suspect]
     Active Substance: ATOGEPANT
     Indication: Migraine
     Dosage: UNK, QD
     Dates: start: 20220331

REACTIONS (3)
  - Dizziness [Recovering/Resolving]
  - Constipation [Unknown]
  - Wrong technique in product usage process [Unknown]
